FAERS Safety Report 15006635 (Version 2)
Quarter: 2018Q2

REPORT INFORMATION
  Report Type: Report from Study
  Country: US (occurrence: US)
  Receive Date: 20180613
  Receipt Date: 20180614
  Transmission Date: 20180711
  Serious: No
  Sender: FDA-Public Use
  Company Number: US-US WORLDMEDS, LLC-USW201710-001459

PATIENT
  Age: 57 Year
  Sex: Female
  Weight: 49.89 kg

DRUGS (8)
  1. CARBO/LEVODOPA [Concomitant]
     Route: 048
  2. RASAGALINE [Concomitant]
     Active Substance: RASAGILINE
     Route: 048
  3. APOKYN [Suspect]
     Active Substance: APOMORPHINE HYDROCHLORIDE
     Indication: PARKINSON^S DISEASE
     Route: 058
     Dates: start: 20170914, end: 20171010
  4. APOKYN [Suspect]
     Active Substance: APOMORPHINE HYDROCHLORIDE
     Route: 058
     Dates: start: 20171014, end: 20171021
  5. VITAMIN D3 [Concomitant]
     Active Substance: CHOLECALCIFEROL
  6. APOKYN [Suspect]
     Active Substance: APOMORPHINE HYDROCHLORIDE
     Route: 058
     Dates: start: 20171013, end: 20171018
  7. CARBO/LEVODOPA [Concomitant]
     Route: 048
  8. RYTARY [Concomitant]
     Active Substance: CARBIDOPA\LEVODOPA
     Route: 048

REACTIONS (10)
  - Lip dry [Recovered/Resolved]
  - Injection site rash [Recovering/Resolving]
  - Eye pruritus [Recovered/Resolved]
  - Nasal congestion [Recovered/Resolved]
  - Hypersensitivity [Recovered/Resolved]
  - Excessive eye blinking [Recovered/Resolved]
  - Visual impairment [Recovered/Resolved]
  - Injection site erythema [Recovering/Resolving]
  - Paraesthesia oral [Recovered/Resolved]
  - Injection site pruritus [Recovering/Resolving]

NARRATIVE: CASE EVENT DATE: 2017
